FAERS Safety Report 7037406-0 (Version None)
Quarter: 2010Q4

REPORT INFORMATION
  Report Type: 
  Country: None (occurrence: None)
  Receive Date: 20101011
  Receipt Date: 20100929
  Transmission Date: 20110411
  Serious: Yes (Other)
  Sender: FDA-Public Use
  Company Number: CA-PFIZER INC-2010124169

PATIENT
  Age: 36 Year
  Sex: Female

DRUGS (6)
  1. ZELDOX [Suspect]
     Dosage: 20 MG, 2X/DAY
     Dates: start: 20091209, end: 20100108
  2. LITHIUM [Concomitant]
     Indication: BIPOLAR DISORDER
     Dosage: 450 MG, UNK
  3. LITHIUM [Concomitant]
     Indication: DEPRESSION
  4. EFFEXOR [Concomitant]
     Indication: BIPOLAR DISORDER
     Dosage: 187.5 MG, UNK
  5. EFFEXOR [Concomitant]
     Indication: DEPRESSION
  6. SEROQUEL [Concomitant]
     Dosage: 25 MG, 1-2 TABLETS AT BEDTIME, AS NEEDED

REACTIONS (10)
  - AKATHISIA [None]
  - CONFUSIONAL STATE [None]
  - DISTURBANCE IN ATTENTION [None]
  - DRY MOUTH [None]
  - EMOTIONAL DISORDER [None]
  - HALLUCINATION, VISUAL [None]
  - JOINT STIFFNESS [None]
  - MALAISE [None]
  - NERVOUSNESS [None]
  - TREMOR [None]
